FAERS Safety Report 5347294-6 (Version None)
Quarter: 2007Q2

REPORT INFORMATION
  Report Type: 
  Country: None (occurrence: None)
  Receive Date: 20070606
  Receipt Date: 20070531
  Transmission Date: 20071010
  Serious: Yes (Other)
  Sender: FDA-Public Use
  Company Number: PHEH2007US07846

PATIENT
  Age: 66 Year
  Sex: Male
  Weight: 99.773 kg

DRUGS (5)
  1. TEKTURNA [Suspect]
     Indication: HYPERTENSION
     Dosage: 150 MG, QD
     Route: 048
     Dates: start: 20070430, end: 20070430
  2. ATENOLOL [Concomitant]
     Indication: HYPERTENSION
     Dosage: 50 UNK, BID
     Route: 048
     Dates: start: 20060401
  3. ALTACE [Concomitant]
     Indication: HYPERTENSION
     Dosage: 10 UNK, BID
     Route: 048
     Dates: start: 20061201
  4. DILTIAZEM [Concomitant]
     Indication: HYPERTENSION
     Dosage: 240 MG, BID
     Route: 048
     Dates: start: 20061201
  5. GLUCOVANCE [Concomitant]
     Indication: DIABETES MELLITUS
     Dosage: 5/500 2TABS QAM, 1TAB QHS
     Dates: start: 20060401

REACTIONS (3)
  - BLOOD GLUCOSE DECREASED [None]
  - FEELING ABNORMAL [None]
  - GLYCOSYLATED HAEMOGLOBIN INCREASED [None]
